FAERS Safety Report 9070461 (Version 1)
Quarter: 2013Q1

REPORT INFORMATION
  Report Type: Spontaneous
  Country: RU (occurrence: RU)
  Receive Date: 20130215
  Receipt Date: 20130215
  Transmission Date: 20140127
  Serious: Yes (Hospitalization, Disabling)
  Sender: FDA-Public Use
  Company Number: RU-BAYER-2013-016801

PATIENT
  Age: 49 Year
  Sex: Female
  Weight: 62.13 kg

DRUGS (1)
  1. MIRENA [Suspect]
     Indication: CONTRACEPTION
     Dosage: 20 MCG/24HR, CONT
     Route: 015
     Dates: start: 2009

REACTIONS (5)
  - Ovarian epithelial cancer [None]
  - Genital prolapse [None]
  - Ascites [None]
  - Metastases to lymph nodes [None]
  - Metastases to peritoneum [None]
